FAERS Safety Report 14008162 (Version 1)
Quarter: 2017Q3

REPORT INFORMATION
  Report Type: Spontaneous
  Country: US (occurrence: None)
  Receive Date: 20170924
  Receipt Date: 20170924
  Transmission Date: 20171128
  Serious: Yes (Hospitalization)
  Sender: FDA-Public Use
  Company Number: None

PATIENT
  Age: 55 Year
  Sex: Male
  Weight: 104 kg

DRUGS (1)
  1. NEXAVAR [Suspect]
     Active Substance: SORAFENIB
     Dates: end: 20170815

REACTIONS (5)
  - Atelectasis [None]
  - Metastases to bone [None]
  - Cough [None]
  - Pyrexia [None]
  - Pulmonary embolism [None]

NARRATIVE: CASE EVENT DATE: 20170817
